FAERS Safety Report 11361577 (Version 1)
Quarter: 2015Q3

REPORT INFORMATION
  Report Type: Spontaneous
  Country: US (occurrence: US)
  Receive Date: 20150810
  Receipt Date: 20150810
  Transmission Date: 20151125
  Serious: No
  Sender: FDA-Public Use
  Company Number: US-BIOGENIDEC-2015BI109843

PATIENT
  Age: 48 Year
  Sex: Male

DRUGS (1)
  1. ALPROLIX [Suspect]
     Active Substance: EFTRENONACOG ALFA
     Indication: PRODUCT USED FOR UNKNOWN INDICATION

REACTIONS (1)
  - Contusion [Unknown]

NARRATIVE: CASE EVENT DATE: 201501
